FAERS Safety Report 9442270 (Version 1)
Quarter: 2013Q3

REPORT INFORMATION
  Report Type: Spontaneous
  Country: DE (occurrence: DE)
  Receive Date: 20130806
  Receipt Date: 20130806
  Transmission Date: 20140515
  Serious: Yes (Other)
  Sender: FDA-Public Use
  Company Number: DE-MYLANLABS-2013S1016932

PATIENT
  Age: 40 Year
  Sex: Female
  Weight: 67 kg

DRUGS (5)
  1. METOPROLOL [Suspect]
     Indication: HYPERTENSION
     Dosage: 200 [MG/D ]/ 100MG/D IM 1. TRIM., 200MG/D IM 2.+3. TRIM.
     Route: 048
  2. METOPROLOL [Suspect]
     Indication: HYPERTENSION
     Route: 048
  3. NEPRESOL [Suspect]
     Indication: HYPERTENSION
     Dosage: 50 [MG/D ]
     Route: 048
  4. PRESINOL [Concomitant]
     Indication: HYPERTENSION
     Dosage: 250 [MG/D ]
     Route: 048
  5. FOLIC ACID [Concomitant]
     Indication: PROPHYLAXIS OF NEURAL TUBE DEFECT
     Route: 048

REACTIONS (2)
  - Pre-eclampsia [Recovered/Resolved]
  - Exposure during pregnancy [Recovered/Resolved]
